FAERS Safety Report 15710724 (Version 3)
Quarter: 2019Q1

REPORT INFORMATION
  Report Type: Report from Study
  Country: ZA (occurrence: ZA)
  Receive Date: 20181211
  Receipt Date: 20190110
  Transmission Date: 20190417
  Serious: Yes (Life-Threatening)
  Sender: FDA-Public Use
  Company Number: ZA-SAKK-2018SA332399AA

PATIENT
  Age: 61 Year
  Sex: Female

DRUGS (7)
  1. GLIMEPIRIDE. [Concomitant]
     Active Substance: GLIMEPIRIDE
     Dosage: 4 MG BB (BEFORE BREAKFAST), QD
     Dates: start: 20181109
  2. SEREZON [Concomitant]
     Dosage: 200 MG AT BT (BED TIME), QD
     Dates: start: 20181119
  3. ADCO-SIMVASTATIN [Concomitant]
     Active Substance: SIMVASTATIN
     Dosage: 20 MG AT BT (BED TIME), QD
     Dates: start: 20181109
  4. ECOTRIN [Concomitant]
     Active Substance: ASPIRIN
     Dosage: 81 MG AB(AFTER BREAKFAST), QD
     Dates: start: 20181109
  5. PHARMAPRESS CO [Concomitant]
     Active Substance: ENALAPRIL MALEATE\HYDROCHLOROTHIAZIDE
     Dosage: 5 MG AT AB (AFTER BREAKFAST) AND AS (AFTER SUPPER), BID
     Dates: start: 20151113
  6. TOUJEO [Suspect]
     Active Substance: INSULIN GLARGINE
     Dosage: 20 U, AT BT (BEDTIME)
     Dates: start: 20181109
  7. NO STUDY DRUG GIVEN [Suspect]
     Active Substance: UNSPECIFIED INGREDIENT
     Dosage: UNK

REACTIONS (3)
  - Pain in extremity [Not Recovered/Not Resolved]
  - Loss of personal independence in daily activities [Not Recovered/Not Resolved]
  - Product dose omission [Unknown]

NARRATIVE: CASE EVENT DATE: 20181202
